FAERS Safety Report 11974219 (Version 1)
Quarter: 2016Q1

REPORT INFORMATION
  Report Type: Report from Study
  Country: US (occurrence: US)
  Receive Date: 20160128
  Receipt Date: 20160128
  Transmission Date: 20160526
  Serious: No
  Sender: FDA-Public Use
  Company Number: US-ABBVIE-15K-163-1401824-00

PATIENT
  Age: 52 Year
  Sex: Female

DRUGS (1)
  1. HUMIRA [Suspect]
     Active Substance: ADALIMUMAB
     Indication: CROHN^S DISEASE
     Route: 065
     Dates: start: 20150425

REACTIONS (5)
  - Wound complication [Unknown]
  - Wound infection [Not Recovered/Not Resolved]
  - Skin warm [Unknown]
  - Laceration [Unknown]
  - Skin discolouration [Unknown]

NARRATIVE: CASE EVENT DATE: 201505
